FAERS Safety Report 10674029 (Version 3)
Quarter: 2015Q1

REPORT INFORMATION
  Report Type: Spontaneous
  Country: US (occurrence: None)
  Receive Date: 20141222
  Receipt Date: 20150107
  Transmission Date: 20150720
  Serious: Yes (Hospitalization)
  Sender: FDA-Public Use
  Company Number: 2014TASUS000586

PATIENT
  Age: 71 Year
  Sex: Female
  Weight: 49 kg

DRUGS (11)
  1. HETLIOZ [Suspect]
     Active Substance: TASIMELTEON
     Indication: CIRCADIAN RHYTHM SLEEP DISORDER
     Route: 048
     Dates: start: 20140617, end: 2014
  2. NOVOLOG [Concomitant]
     Active Substance: INSULIN ASPART
  3. CORTISPORIN (HYDROCORTISONE, NEOMYCIN SULFATE, POLYMYXIN B SULFATE) [Concomitant]
  4. CALCIUM +D (CALCIUM CARBONATE, COLECALCIFEROL) [Concomitant]
  5. GATIFLOXACIN. [Concomitant]
     Active Substance: GATIFLOXACIN
  6. CITALOPRAM HYDROBROMIDE. [Concomitant]
     Active Substance: CITALOPRAM HYDROBROMIDE
  7. AMLODIPINE BESYLATE. [Concomitant]
     Active Substance: AMLODIPINE BESYLATE
  8. TIMOLOL MALEATE. [Concomitant]
     Active Substance: TIMOLOL MALEATE
  9. PROPRANOLOL HCL (PROPRANOLOL HYDROCHLORIDE) [Concomitant]
  10. SYNTHROID [Concomitant]
     Active Substance: LEVOTHYROXINE SODIUM
  11. MULTIVITAMINS (ASCORBIC ACID, ERGOCALCIFEROL, FOLIC ACID, NICOTINAMIDE, PANTHENOL, RETINOL, RIBOFLAVIN, THIAMINE HYDRCHLORIDE)? [Concomitant]

REACTIONS (3)
  - Transient ischaemic attack [None]
  - Drug ineffective [None]
  - Insomnia [None]

NARRATIVE: CASE EVENT DATE: 2014
